FAERS Safety Report 7909749-7 (Version None)
Quarter: 2011Q4

REPORT INFORMATION
  Report Type: 
  Country: None (occurrence: None)
  Receive Date: 20111111
  Receipt Date: 20111102
  Transmission Date: 20120403
  Serious: Yes (Other)
  Sender: FDA-Public Use
  Company Number: US-ALLERGAN-1114556US

PATIENT
  Age: 70 Year
  Sex: Female

DRUGS (6)
  1. HYDROCHLOROTHIAZIDE [Concomitant]
  2. BUPROPION HCL [Concomitant]
  3. SIMVASTATIN [Concomitant]
  4. TIMOLOL MALEATE [Suspect]
     Indication: OPEN ANGLE GLAUCOMA
     Route: 047
  5. LISINOPRIL [Concomitant]
  6. BRIMONIDINE TARTRATE [Concomitant]

REACTIONS (4)
  - PALPITATIONS [None]
  - DYSPNOEA [None]
  - ATRIOVENTRICULAR BLOCK [None]
  - SINUS BRADYCARDIA [None]
